FAERS Safety Report 5648033-1 (Version None)
Quarter: 2008Q1

REPORT INFORMATION
  Report Type: 
  Country: None (occurrence: None)
  Receive Date: 20080229
  Receipt Date: 20080229
  Transmission Date: 20080703
  Serious: Yes (Hospitalization)
  Sender: FDA-Public Use
  Company Number: None

PATIENT
  Age: 82 Year
  Sex: Male
  Weight: 98 kg

DRUGS (1)
  1. FUROSEMIDE [Suspect]
     Indication: CARDIAC FAILURE CONGESTIVE
     Dosage: 20MG EVERY DAY PO
     Route: 048
     Dates: start: 20080112, end: 20080127

REACTIONS (12)
  - ASTHENIA [None]
  - CHEST DISCOMFORT [None]
  - DYSPNOEA [None]
  - DYSPNOEA PAROXYSMAL NOCTURNAL [None]
  - FATIGUE [None]
  - INFLUENZA LIKE ILLNESS [None]
  - OEDEMA PERIPHERAL [None]
  - ORTHOPNOEA [None]
  - PRODUCTIVE COUGH [None]
  - PULMONARY CONGESTION [None]
  - SPUTUM DISCOLOURED [None]
  - WEIGHT INCREASED [None]
